FAERS Safety Report 10464080 (Version 1)
Quarter: 2014Q3

REPORT INFORMATION
  Report Type: Spontaneous
  Country: IN (occurrence: IN)
  Receive Date: 20140919
  Receipt Date: 20140919
  Transmission Date: 20150326
  Serious: Yes (Death)
  Sender: FDA-Public Use
  Company Number: IN-009507513-1409IND007976

PATIENT
  Age: 51 Year
  Sex: Female

DRUGS (2)
  1. VIRAFERON [Suspect]
     Active Substance: INTERFERON ALFA-2B
     Dosage: 1 DOSE WEEKLY; STRENGTH REPORTED AS 100 UNIT NOT PROVIDED
     Dates: end: 20140801
  2. REBETOL [Suspect]
     Active Substance: RIBAVIRIN
     Dosage: UNK
     Route: 048

REACTIONS (1)
  - Decreased immune responsiveness [Fatal]
